FAERS Safety Report 23875495 (Version 2)
Quarter: 2024Q2

REPORT INFORMATION
  Report Type: Spontaneous
  Country: AU (occurrence: AU)
  Receive Date: 20240520
  Receipt Date: 20240524
  Transmission Date: 20240715
  Serious: Yes (Death, Other)
  Sender: FDA-Public Use
  Company Number: None

PATIENT
  Age: 57 Year
  Sex: Male

DRUGS (29)
  1. AMPHOTERICIN B [Suspect]
     Active Substance: AMPHOTERICIN B
     Indication: Scedosporium infection
     Dosage: UNK
     Route: 031
  2. AMPHOTERICIN B [Suspect]
     Active Substance: AMPHOTERICIN B
     Indication: Mycotic endophthalmitis
     Dosage: UNK
     Route: 065
  3. AMPHOTERICIN B [Suspect]
     Active Substance: AMPHOTERICIN B
     Dosage: UNK
     Route: 065
  4. CASPOFUNGIN ACETATE [Suspect]
     Active Substance: CASPOFUNGIN ACETATE
     Indication: Scedosporium infection
     Dosage: UNK
     Route: 031
  5. CASPOFUNGIN ACETATE [Suspect]
     Active Substance: CASPOFUNGIN ACETATE
     Indication: Mycotic endophthalmitis
     Dosage: UNK
     Route: 065
  6. CASPOFUNGIN ACETATE [Suspect]
     Active Substance: CASPOFUNGIN ACETATE
     Dosage: UNK
     Route: 065
  7. OLOROFIM [Suspect]
     Active Substance: OLOROFIM
     Indication: Scedosporium infection
     Dosage: 150 MILLIGRAM 1 DAY
     Route: 031
  8. OLOROFIM [Suspect]
     Active Substance: OLOROFIM
     Dosage: 150 MILLIGRAM 1 DAY
     Route: 065
  9. OLOROFIM [Suspect]
     Active Substance: OLOROFIM
     Dosage: 180 MG, QD
     Route: 065
  10. OLOROFIM [Suspect]
     Active Substance: OLOROFIM
     Indication: Mycotic endophthalmitis
     Dosage: 90 MILLIGRAM; INTERVAL: 1 DAY
     Route: 031
  11. OLOROFIM [Suspect]
     Active Substance: OLOROFIM
     Dosage: UNK
     Route: 065
  12. TACROLIMUS [Suspect]
     Active Substance: TACROLIMUS
     Indication: Immunosuppressant drug therapy
     Dosage: UNK
     Route: 065
  13. TACROLIMUS [Suspect]
     Active Substance: TACROLIMUS
     Dosage: UNK
     Route: 065
  14. TERBINAFINE [Suspect]
     Active Substance: TERBINAFINE
     Dosage: 500 MG, QD
     Route: 065
  15. TERBINAFINE [Suspect]
     Active Substance: TERBINAFINE
     Indication: Mycotic endophthalmitis
     Dosage: UNK
     Route: 065
  16. TERBINAFINE [Suspect]
     Active Substance: TERBINAFINE
     Indication: Scedosporium infection
     Dosage: UNK
     Route: 065
  17. VORICONAZOLE [Suspect]
     Active Substance: VORICONAZOLE
     Indication: Scedosporium infection
     Dosage: UNK
     Route: 031
  18. VORICONAZOLE [Suspect]
     Active Substance: VORICONAZOLE
     Indication: Mycotic endophthalmitis
     Dosage: UNK
     Route: 065
  19. VORICONAZOLE [Suspect]
     Active Substance: VORICONAZOLE
     Dosage: UNK
     Route: 065
  20. VORICONAZOLE [Suspect]
     Active Substance: VORICONAZOLE
     Dosage: 40 MG, QD
     Route: 048
  21. VORICONAZOLE [Suspect]
     Active Substance: VORICONAZOLE
     Dosage: 500 MG, QD
     Route: 048
  22. VORICONAZOLE [Suspect]
     Active Substance: VORICONAZOLE
     Indication: Scedosporium infection
     Dosage: UNK
     Route: 048
  23. CEFTAZIDIME [Concomitant]
     Active Substance: CEFTAZIDIME
     Indication: Product used for unknown indication
     Dosage: UNK
     Route: 065
  24. MICAFUNGIN [Concomitant]
     Active Substance: MICAFUNGIN SODIUM
     Indication: Scedosporium infection
     Dosage: 150 MG, QD
     Route: 065
  25. MICAFUNGIN [Concomitant]
     Active Substance: MICAFUNGIN SODIUM
     Indication: Endophthalmitis
     Dosage: 300 MG
     Route: 065
  26. SULFAMETHOXAZOLE AND TRIMETHOPRIM [Concomitant]
     Active Substance: SULFAMETHOXAZOLE\TRIMETHOPRIM
     Indication: Product used for unknown indication
     Dosage: UNK
     Route: 065
  27. VALGANCICLOVIR [Concomitant]
     Active Substance: VALGANCICLOVIR
     Indication: Product used for unknown indication
     Dosage: UNK
     Route: 065
  28. VALGANCICLOVIR [Concomitant]
     Active Substance: VALGANCICLOVIR
     Dosage: UNK
     Route: 065
  29. VANCOMYCIN [Concomitant]
     Active Substance: VANCOMYCIN
     Indication: Product used for unknown indication
     Dosage: UNK
     Route: 065

REACTIONS (4)
  - Mycotic endophthalmitis [Fatal]
  - Scedosporium infection [Fatal]
  - Drug ineffective [Fatal]
  - Off label use [Fatal]
